FAERS Safety Report 4300260-1 (Version None)
Quarter: 2004Q1

REPORT INFORMATION
  Report Type: 
  Country: None (occurrence: None)
  Receive Date: 20040218
  Receipt Date: 20040203
  Transmission Date: 20041129
  Serious: Yes (Hospitalization)
  Sender: FDA-Public Use
  Company Number: S04-FRA-00516-01

PATIENT
  Age: 62 Year
  Sex: Female

DRUGS (3)
  1. SEROPRAM (CITALOPRAM HYDROBROMIDE) [Suspect]
     Dosage: 1 QD PO
     Route: 048
  2. BUSPAR [Suspect]
     Dosage: 2 QD PO
     Route: 048
  3. PANCREATIN [Concomitant]
     Dosage: 25000 UNITS TID PO
     Route: 048

REACTIONS (6)
  - ARTHRALGIA [None]
  - CONJUNCTIVITIS [None]
  - CUTANEOUS VASCULITIS [None]
  - PAIN IN EXTREMITY [None]
  - PYREXIA [None]
  - RASH ERYTHEMATOUS [None]
